FAERS Safety Report 8849659 (Version 2)
Quarter: 2012Q4

REPORT INFORMATION
  Report Type: 
  Country: ES (occurrence: ES)
  Receive Date: 20121019
  Receipt Date: 20121107
  Transmission Date: 20130627
  Serious: Yes (Hospitalization, Other)
  Sender: FDA-Public Use
  Company Number: ES-SHIRE-SPV1-2012-00904

PATIENT
  Age: 51 Year
  Sex: Female

DRUGS (2)
  1. XAGRID [Suspect]
     Indication: ESSENTIAL THROMBOCYTHAEMIA
     Dosage: 1 mg, 2x/day:bid (two 0.5 mg capsules every 12 hours)
     Route: 048
     Dates: start: 200801
  2. ACETYLSALICYLIC ACID [Concomitant]
     Indication: ESSENTIAL THROMBOCYTHAEMIA

REACTIONS (2)
  - Acute myeloid leukaemia [Recovering/Resolving]
  - Haemorrhagic diathesis [Recovered/Resolved]
